FAERS Safety Report 4731220-4 (Version None)
Quarter: 2005Q3

REPORT INFORMATION
  Report Type: 
  Country: None (occurrence: None)
  Receive Date: 20050802
  Receipt Date: 20050721
  Transmission Date: 20060218
  Serious: Yes (Hospitalization, Other)
  Sender: FDA-Public Use
  Company Number: GB-JNJFOC-20050704545

PATIENT
  Sex: Male
  Weight: 79 kg

DRUGS (11)
  1. REMICADE [Suspect]
     Indication: RHEUMATOID ARTHRITIS
     Route: 042
  2. AZATHIOPRINE [Concomitant]
     Route: 065
  3. HCQ [Concomitant]
     Route: 065
  4. RIFINAH [Concomitant]
     Route: 065
  5. RIFINAH [Concomitant]
     Route: 065
  6. CELEBREX [Concomitant]
     Route: 065
  7. FOSAMAX [Concomitant]
     Route: 065
  8. NEXIUM [Concomitant]
     Route: 065
  9. BUSCOPAN [Concomitant]
     Route: 065
  10. THEOPHYLLINE [Concomitant]
     Route: 065
  11. VENTOLIN [Concomitant]
     Route: 065

REACTIONS (1)
  - CROHN'S DISEASE [None]
